FAERS Safety Report 9816256 (Version 3)
Quarter: 2014Q1

REPORT INFORMATION
  Report Type: Spontaneous
  Country: US (occurrence: US)
  Receive Date: 20140114
  Receipt Date: 20140129
  Transmission Date: 20141002
  Serious: Yes (Other)
  Sender: FDA-Public Use
  Company Number: US-BAYER-2013-150583

PATIENT
  Age: 35 Year
  Sex: Female

DRUGS (8)
  1. ESSURE [Suspect]
     Indication: STERILISATION
     Dosage: UNK
     Dates: start: 20121019, end: 20121217
  2. MIRENA [Suspect]
     Dosage: UNK
     Dates: end: 20121019
  3. VALIUM [Concomitant]
     Indication: ANALGESIC THERAPY
  4. IBUPROFEN [Concomitant]
     Indication: ANALGESIC THERAPY
     Dosage: UNK
  5. MISOPROSTOL [Concomitant]
     Indication: ANALGESIC THERAPY
     Dosage: UNK
  6. TYLENOL [PARACETAMOL] [Concomitant]
     Indication: ANALGESIC THERAPY
  7. LIDOCAINE [Concomitant]
     Indication: ANALGESIC THERAPY
  8. MARCAINE [Concomitant]
     Indication: ANALGESIC THERAPY

REACTIONS (22)
  - Allergy to metals [Recovering/Resolving]
  - Device difficult to use [Recovered/Resolved]
  - Procedural pain [Recovered/Resolved]
  - Pelvic pain [Recovered/Resolved]
  - Menorrhagia [Recovered/Resolved]
  - Migraine [Recovered/Resolved]
  - Back pain [Recovered/Resolved]
  - Fatigue [Recovered/Resolved]
  - Alopecia [Recovered/Resolved]
  - Amnesia [Recovered/Resolved]
  - Confusional state [Recovered/Resolved]
  - Musculoskeletal pain [Recovered/Resolved]
  - Insomnia [Recovered/Resolved]
  - Impaired healing [Recovered/Resolved]
  - Syncope [Recovered/Resolved]
  - Coeliac disease [Not Recovered/Not Resolved]
  - Dermatitis contact [Not Recovered/Not Resolved]
  - Fallopian tube cyst [Recovered/Resolved]
  - Adenomyosis [Recovered/Resolved]
  - Uterine inflammation [Recovered/Resolved]
  - Uterine enlargement [Recovered/Resolved]
  - Device difficult to use [None]
